FAERS Safety Report 6804688-7 (Version None)
Quarter: 2010Q2

REPORT INFORMATION
  Report Type: 
  Country: None (occurrence: None)
  Receive Date: 20100628
  Receipt Date: 20071121
  Transmission Date: 20101027
  Serious: Yes (Other)
  Sender: FDA-Public Use
  Company Number: US-PFIZER INC-2007026828

PATIENT
  Sex: Male
  Weight: 73.5 kg

DRUGS (8)
  1. SUTENT [Suspect]
     Indication: RENAL CELL CARCINOMA
     Route: 048
     Dates: start: 20070302
  2. TAMSULOSIN HYDROCHLORIDE [Concomitant]
  3. PROZAC [Concomitant]
  4. OMEPRAZOLE [Concomitant]
  5. LISINOPRIL [Concomitant]
  6. CLONIDINE [Concomitant]
  7. NORVASC [Concomitant]
  8. METOPROLOL [Concomitant]

REACTIONS (2)
  - HEADACHE [None]
  - HYPERTENSION [None]
